FAERS Safety Report 7083963-8 (Version None)
Quarter: 2010Q4

REPORT INFORMATION
  Report Type: 
  Country: None (occurrence: None)
  Receive Date: 20101104
  Receipt Date: 20100521
  Transmission Date: 20110411
  Serious: No
  Sender: FDA-Public Use
  Company Number: US-ABBOTT-10P-163-0647269-00

PATIENT
  Sex: Male
  Weight: 88.076 kg

DRUGS (3)
  1. KALETRA [Suspect]
     Indication: HIV TEST POSITIVE
     Route: 048
     Dates: start: 20081001
  2. TRUVADA [Concomitant]
     Indication: HIV TEST POSITIVE
     Route: 048
     Dates: start: 20081001
  3. ACYCLOVIR SODIUM [Concomitant]
     Indication: HERPES VIRUS INFECTION
     Route: 048

REACTIONS (1)
  - DIARRHOEA [None]
